FAERS Safety Report 4617854-6 (Version None)
Quarter: 2005Q1

REPORT INFORMATION
  Report Type: 
  Country: None (occurrence: None)
  Receive Date: 20050322
  Receipt Date: 20050311
  Transmission Date: 20050727
  Serious: Yes (Hospitalization)
  Sender: FDA-Public Use
  Company Number: 863#1#2005-00001

PATIENT
  Age: 50 Year
  Sex: Female

DRUGS (2)
  1. IDROLAX   (MACROGOL) [Suspect]
     Indication: COLONOSCOPY
     Dosage: 1.4 SACHETS/4 LITERES ORAL
     Route: 048
     Dates: start: 20040101, end: 20040101
  2. IDROLAX   (MACROGOL) [Suspect]
     Indication: COLONOSCOPY
     Dosage: 1.4 SACHETS/4 LITERES ORAL
     Route: 048
     Dates: start: 20050201, end: 20050201

REACTIONS (7)
  - ASTHENIA [None]
  - CHILLS [None]
  - DYSPNOEA [None]
  - FACE OEDEMA [None]
  - HYPERHIDROSIS [None]
  - NAUSEA [None]
  - VOMITING [None]
